FAERS Safety Report 5120607-6 (Version None)
Quarter: 2006Q3

REPORT INFORMATION
  Report Type: 
  Country: None (occurrence: None)
  Receive Date: 20060928
  Receipt Date: 20060914
  Transmission Date: 20061208
  Serious: Yes (Hospitalization)
  Sender: FDA-Public Use
  Company Number: 2006115037

PATIENT
  Age: 27 Year
  Sex: Male
  Weight: 90 kg

DRUGS (1)
  1. DALTEPARIN SODIUM [Suspect]
     Dosage: 2500 I.U.

REACTIONS (3)
  - CELLULITIS [None]
  - HAEMORRHAGE [None]
  - WOUND [None]
